FAERS Safety Report 16182723 (Version 2)
Quarter: 2020Q2

REPORT INFORMATION
  Report Type: Spontaneous
  Country: PR (occurrence: US)
  Receive Date: 20190411
  Receipt Date: 20200522
  Transmission Date: 20200713
  Serious: Yes (Death, Hospitalization, Other)
  Sender: FDA-Public Use
  Company Number: PR-JNJFOC-20190343782

PATIENT
  Age: 79 Year
  Sex: Male

DRUGS (2)
  1. XARELTO [Suspect]
     Active Substance: RIVAROXABAN
     Indication: ATRIAL FIBRILLATION
  2. XARELTO [Suspect]
     Active Substance: RIVAROXABAN
     Indication: CEREBROVASCULAR ACCIDENT PROPHYLAXIS
     Route: 048
     Dates: end: 20171228

REACTIONS (3)
  - Aortic aneurysm rupture [Fatal]
  - Shock haemorrhagic [Fatal]
  - Haemorrhage [Unknown]

NARRATIVE: CASE EVENT DATE: 201512
